FAERS Safety Report 16777183 (Version 1)
Quarter: 2019Q3

REPORT INFORMATION
  Report Type: Spontaneous
  Country: FR (occurrence: FR)
  Receive Date: 20190905
  Receipt Date: 20190905
  Transmission Date: 20191005
  Serious: Yes (Hospitalization)
  Sender: FDA-Public Use
  Company Number: FR-INDIVIOR EUROPE LIMITED-INDV-121407-2019

PATIENT
  Age: 47 Year
  Sex: Female

DRUGS (2)
  1. RITALINE [Suspect]
     Active Substance: METHYLPHENIDATE HYDROCHLORIDE
     Indication: PRODUCT USED FOR UNKNOWN INDICATION
     Dosage: UNKNOWN
     Route: 042
  2. SUBUTEX [Suspect]
     Active Substance: BUPRENORPHINE HYDROCHLORIDE
     Indication: PRODUCT USED FOR UNKNOWN INDICATION
     Dosage: UNKNOWN
     Route: 042

REACTIONS (4)
  - Injection site erosion [Recovering/Resolving]
  - Intentional product use issue [Unknown]
  - Intervertebral discitis [Recovering/Resolving]
  - Drug use disorder [Not Recovered/Not Resolved]
